FAERS Safety Report 21706116 (Version 3)
Quarter: 2023Q1

REPORT INFORMATION
  Report Type: Spontaneous
  Country: CO (occurrence: CO)
  Receive Date: 20221209
  Receipt Date: 20230207
  Transmission Date: 20230417
  Serious: Yes (Hospitalization, Other)
  Sender: FDA-Public Use
  Company Number: CO-ORPHANEU-2022006523

PATIENT

DRUGS (2)
  1. CARBAGLU [Suspect]
     Active Substance: CARGLUMIC ACID
     Indication: Ornithine transcarbamoylase deficiency
     Dosage: 800 MILLIGRAM, Q8H
     Route: 048
     Dates: start: 20220418, end: 202212
  2. CARBAGLU [Suspect]
     Active Substance: CARGLUMIC ACID
     Indication: Off label use
     Dosage: 1 GRAM, Q8H
     Route: 048
     Dates: start: 20221203, end: 20230130

REACTIONS (5)
  - Hyperammonaemia [Recovered/Resolved]
  - Somnolence [Recovering/Resolving]
  - Decreased appetite [Recovering/Resolving]
  - Vomiting [Recovered/Resolved]
  - Off label use [Recovered/Resolved]

NARRATIVE: CASE EVENT DATE: 20220418
